FAERS Safety Report 7954430 (Version 5)
Quarter: 2013Q1

REPORT INFORMATION
  Report Type: Spontaneous
  Country: FR (occurrence: FR)
  Receive Date: 20110520
  Receipt Date: 20130131
  Transmission Date: 20140127
  Serious: Yes (Life-Threatening, Hospitalization)
  Sender: FDA-Public Use
  Company Number: FR-UCBSA-024276

PATIENT
  Age: 28 Year
  Sex: Female
  Weight: 45 kg

DRUGS (12)
  1. KEPPRA [Suspect]
     Indication: GRAND MAL CONVULSION
     Route: 048
     Dates: start: 20101020, end: 20101124
  2. FLAGYL [Suspect]
     Route: 048
     Dates: start: 20101110, end: 20101116
  3. VFEND [Suspect]
     Indication: EAR INFECTION
     Route: 048
     Dates: start: 20101018, end: 20101113
  4. URBANYL [Suspect]
     Indication: CONVULSION
     Route: 048
     Dates: start: 20101020, end: 20101117
  5. KALETRA [Concomitant]
  6. VIREAD [Concomitant]
  7. ZIAGEN [Concomitant]
  8. PARA-AMINOSALICYLIC ACID [Concomitant]
  9. CYCLOSERINE [Concomitant]
  10. ETHAMBUTOL [Concomitant]
  11. MOXIFLOXACIN [Concomitant]
  12. CORTANCYL [Concomitant]

REACTIONS (9)
  - Toxic epidermal necrolysis [Recovered/Resolved with Sequelae]
  - Oedema [Recovering/Resolving]
  - Eosinophilia [Recovered/Resolved]
  - Histiocytosis haematophagic [Unknown]
  - Pneumococcal sepsis [Unknown]
  - Clostridium difficile colitis [Unknown]
  - Pseudomonal sepsis [Unknown]
  - Acute respiratory distress syndrome [Unknown]
  - Staphylococcus test positive [Unknown]
